FAERS Safety Report 7790423-5 (Version None)
Quarter: 2011Q3

REPORT INFORMATION
  Report Type: 
  Country: None (occurrence: None)
  Receive Date: 20110930
  Receipt Date: 20110928
  Transmission Date: 20111222
  Serious: Yes (Life-Threatening)
  Sender: FDA-Public Use
  Company Number: CH-PFIZER INC-2011230763

PATIENT
  Age: 47 Year
  Sex: Female

DRUGS (4)
  1. AMOXICILLIN AND CLAVULANATE POTASSIUM [Concomitant]
  2. TAZOBAC [Suspect]
     Indication: BACTERIAL INFECTION
     Dosage: UNK
     Route: 041
     Dates: start: 20110617, end: 20110617
  3. CIPROFLOXACIN [Concomitant]
  4. METRONIDAZOLE [Concomitant]

REACTIONS (4)
  - FEELING HOT [None]
  - ERYTHEMA [None]
  - HYPOTENSION [None]
  - TYPE I HYPERSENSITIVITY [None]
